FAERS Safety Report 15747758 (Version 1)
Quarter: 2018Q4

REPORT INFORMATION
  Report Type: Spontaneous
  Country: US (occurrence: US)
  Receive Date: 20181221
  Receipt Date: 20181221
  Transmission Date: 20190205
  Serious: Yes (Other)
  Sender: FDA-Public Use
  Company Number: US-JNJFOC-20181138977

PATIENT
  Sex: Female

DRUGS (11)
  1. AMARYL [Concomitant]
     Active Substance: GLIMEPIRIDE
  2. ACTOS [Concomitant]
     Active Substance: PIOGLITAZONE HYDROCHLORIDE
  3. COMPAZINE [Concomitant]
     Active Substance: PROCHLORPERAZINE MALEATE
  4. IMBRUVICA [Suspect]
     Active Substance: IBRUTINIB
     Indication: CHRONIC LYMPHOCYTIC LEUKAEMIA
     Route: 065
  5. LASIX [Concomitant]
     Active Substance: FUROSEMIDE
  6. ELOCON [Concomitant]
     Active Substance: MOMETASONE FUROATE
  7. LOPRESSOR [Concomitant]
     Active Substance: METOPROLOL TARTRATE
  8. JANUMET [Concomitant]
     Active Substance: METFORMIN HYDROCHLORIDE\SITAGLIPTIN PHOSPHATE
     Dosage: 50-1,000 MG
  9. LIPITOR [Concomitant]
     Active Substance: ATORVASTATIN CALCIUM
  10. MAXITROL [Concomitant]
     Active Substance: DEXAMETHASONE\NEOMYCIN SULFATE\POLYMYXIN B SULFATE
     Dosage: UNIT/ML-O.1 0/9
     Route: 047
  11. BENICAR [Concomitant]
     Active Substance: OLMESARTAN MEDOXOMIL

REACTIONS (11)
  - Genital disorder female [Unknown]
  - Cardiomyopathy [Unknown]
  - Essential hypertension [Unknown]
  - Pneumonia [Unknown]
  - Hyperlipidaemia [Unknown]
  - Mammogram abnormal [Unknown]
  - Bronchiectasis [Unknown]
  - Type 2 diabetes mellitus [Unknown]
  - Acute myocardial infarction [Unknown]
  - Incorrect dose administered [Unknown]
  - Off label use [Unknown]
